FAERS Safety Report 24533746 (Version 1)
Quarter: 2024Q4

REPORT INFORMATION
  Report Type: Spontaneous
  Country: US (occurrence: US)
  Receive Date: 20241022
  Receipt Date: 20241022
  Transmission Date: 20250114
  Serious: No
  Sender: ALIMERA
  Company Number: US-ALIMERA SCIENCES INC.-US-A16013-23-000472

PATIENT
  Age: 58 Year
  Sex: Female

DRUGS (1)
  1. ILUVIEN [Suspect]
     Active Substance: FLUOCINOLONE ACETONIDE
     Indication: Product used for unknown indication
     Dosage: 0.25 MICROGRAM, QD - RIGHT EYE
     Route: 031
     Dates: start: 20231107

REACTIONS (1)
  - Medication error [Unknown]

NARRATIVE: CASE EVENT DATE: 20231107
